FAERS Safety Report 5830792-6 (Version None)
Quarter: 2008Q3

REPORT INFORMATION
  Report Type: 
  Country: None (occurrence: None)
  Receive Date: 20080801
  Receipt Date: 20071126
  Transmission Date: 20090109
  Serious: No
  Sender: FDA-Public Use
  Company Number: US-BRISTOL-MYERS SQUIBB COMPANY-13993068

PATIENT
  Age: 88 Year
  Sex: Female
  Weight: 54 kg

DRUGS (9)
  1. COUMADIN [Suspect]
     Dosage: COUMADIN-10/2006; CURRENTLY ON COUMADIN3MG 1TAB TWICE/WK; COUMADIN6MG 3MG 2TABS 5 PER WEEK.
     Route: 048
     Dates: start: 20061001
  2. NEXIUM [Concomitant]
  3. TOPROL-XL [Concomitant]
  4. COZAAR [Concomitant]
  5. ASPIRIN [Concomitant]
  6. FOSAMAX [Concomitant]
  7. CALCIUM CITRATE [Concomitant]
  8. VITAMIN D [Concomitant]
  9. LIPITOR [Concomitant]

REACTIONS (1)
  - INTERNATIONAL NORMALISED RATIO INCREASED [None]
